FAERS Safety Report 16221887 (Version 1)
Quarter: 2019Q2

REPORT INFORMATION
  Report Type: Report from Study
  Country: US (occurrence: US)
  Receive Date: 20190422
  Receipt Date: 20190422
  Transmission Date: 20190711
  Serious: Yes (Other)
  Sender: FDA-Public Use
  Company Number: US-SA-2019SA105361

PATIENT
  Age: 64 Year
  Sex: Male

DRUGS (2)
  1. NOVOLIN [Concomitant]
     Active Substance: INSULIN HUMAN
     Dosage: UNK UNK, TID
     Route: 065
  2. INSULIN GLARGINE [Suspect]
     Active Substance: INSULIN GLARGINE
     Indication: TYPE 2 DIABETES MELLITUS
     Dosage: 50 U, HS, BEFORE BEDTIME
     Route: 058

REACTIONS (3)
  - Eye disorder [Not Recovered/Not Resolved]
  - Product dose omission [Unknown]
  - Blindness [Not Recovered/Not Resolved]
